FAERS Safety Report 13788175 (Version 2)
Quarter: 2017Q4

REPORT INFORMATION
  Report Type: Spontaneous
  Country: US (occurrence: US)
  Receive Date: 20170725
  Receipt Date: 20171010
  Transmission Date: 20180320
  Serious: No
  Sender: FDA-Public Use
  Company Number: US-JNJFOC-20150719447

PATIENT
  Age: 67 Year
  Sex: Female

DRUGS (22)
  1. XYLOMETAZOLINE HYDROCHLORIDE [Concomitant]
     Active Substance: XYLOMETAZOLINE HYDROCHLORIDE
  2. LASIX [Concomitant]
     Active Substance: FUROSEMIDE
  3. ASPIRIN. [Concomitant]
     Active Substance: ASPIRIN
  4. AMBIEN [Concomitant]
     Active Substance: ZOLPIDEM TARTRATE
  5. IMBRUVICA [Suspect]
     Active Substance: IBRUTINIB
     Indication: CHRONIC LYMPHOCYTIC LEUKAEMIA
     Route: 048
     Dates: start: 20150205, end: 2016
  6. IMBRUVICA [Suspect]
     Active Substance: IBRUTINIB
     Indication: CHRONIC LYMPHOCYTIC LEUKAEMIA
     Route: 048
     Dates: start: 20151215
  7. NOVOLOG [Concomitant]
     Active Substance: INSULIN ASPART
  8. ATORVASTATIN [Concomitant]
     Active Substance: ATORVASTATIN
  9. ALLOPURINOL. [Concomitant]
     Active Substance: ALLOPURINOL
  10. NEURONTIN [Concomitant]
     Active Substance: GABAPENTIN
  11. IMBRUVICA [Suspect]
     Active Substance: IBRUTINIB
     Indication: NEOPLASM MALIGNANT
     Route: 048
     Dates: start: 20150205, end: 2016
  12. VITAMIN D [Concomitant]
     Active Substance: CHOLECALCIFEROL
  13. TENEX [Concomitant]
     Active Substance: GUANFACINE HYDROCHLORIDE
  14. FERROUS SULFATE. [Concomitant]
     Active Substance: FERROUS SULFATE
  15. LISINOPRIL. [Concomitant]
     Active Substance: LISINOPRIL
  16. ZETIA [Concomitant]
     Active Substance: EZETIMIBE
  17. SINGULAIR [Concomitant]
     Active Substance: MONTELUKAST SODIUM
  18. IMBRUVICA [Suspect]
     Active Substance: IBRUTINIB
     Indication: NEOPLASM MALIGNANT
     Route: 048
     Dates: start: 20151215
  19. IMBRUVICA [Suspect]
     Active Substance: IBRUTINIB
     Indication: NEOPLASM MALIGNANT
     Route: 048
     Dates: start: 2016
  20. COREG [Concomitant]
     Active Substance: CARVEDILOL
  21. IMBRUVICA [Suspect]
     Active Substance: IBRUTINIB
     Indication: CHRONIC LYMPHOCYTIC LEUKAEMIA
     Route: 048
     Dates: start: 2016
  22. LEVEMIR [Concomitant]
     Active Substance: INSULIN DETEMIR

REACTIONS (9)
  - Dizziness [Not Recovered/Not Resolved]
  - Skin haemorrhage [Unknown]
  - Pneumonia [Unknown]
  - Gingival bleeding [Unknown]
  - Platelet count decreased [Unknown]
  - Bleeding time prolonged [Unknown]
  - Back pain [Not Recovered/Not Resolved]
  - Stomatitis [Unknown]
  - Rash [Unknown]

NARRATIVE: CASE EVENT DATE: 2015
